FAERS Safety Report 9820082 (Version 1)
Quarter: 2014Q1

REPORT INFORMATION
  Report Type: Spontaneous
  Country: US (occurrence: None)
  Receive Date: 20140113
  Receipt Date: 20140113
  Transmission Date: 20141002
  Serious: No
  Sender: FDA-Public Use
  Company Number: None

PATIENT
  Age: 65 Year
  Sex: Female
  Weight: 48.99 kg

DRUGS (2)
  1. LIDODERM [Suspect]
     Indication: BACK PAIN
     Dosage: 3 PATCHES DAILY, APPLIED AS MEDICATED PATCH TO SKIN
     Route: 062
     Dates: start: 20090401, end: 20130701
  2. LIDODERM [Suspect]
     Indication: SPINAL PAIN
     Dosage: 3 PATCHES DAILY, APPLIED AS MEDICATED PATCH TO SKIN
     Route: 062
     Dates: start: 20090401, end: 20130701

REACTIONS (3)
  - Fatigue [None]
  - Fatigue [None]
  - Impaired driving ability [None]
